FAERS Safety Report 4520958-X (Version None)
Quarter: 2004Q4

REPORT INFORMATION
  Report Type: 
  Country: None (occurrence: None)
  Receive Date: 20041208
  Receipt Date: 20041130
  Transmission Date: 20050328
  Serious: Yes (Death)
  Sender: FDA-Public Use
  Company Number: US-JNJFOC-20040700474

PATIENT
  Age: 50 Year
  Sex: Male
  Weight: 81.65 kg

DRUGS (4)
  1. DURAGESIC [Suspect]
     Route: 062
  2. DURAGESIC [Suspect]
     Route: 062
  3. REMERON [Concomitant]
  4. BEXTRA [Concomitant]

REACTIONS (20)
  - ACCIDENTAL DEATH [None]
  - AMNESIA [None]
  - ANXIETY [None]
  - ASTHENIA [None]
  - DEATH [None]
  - DEPRESSION [None]
  - DYSPHAGIA [None]
  - HEADACHE [None]
  - HEARING IMPAIRED [None]
  - INSOMNIA [None]
  - JOINT RANGE OF MOTION DECREASED [None]
  - JOINT STIFFNESS [None]
  - MUSCLE CRAMP [None]
  - MUSCLE SPASMS [None]
  - MUSCULOSKELETAL PAIN [None]
  - NIGHT SWEATS [None]
  - PAIN EXACERBATED [None]
  - PARAESTHESIA [None]
  - THERAPEUTIC AGENT TOXICITY [None]
  - TRIGGER FINGER [None]
